FAERS Safety Report 10100650 (Version 1)
Quarter: 2014Q2

REPORT INFORMATION
  Report Type: Spontaneous
  Country: SE (occurrence: SE)
  Receive Date: 20140423
  Receipt Date: 20140423
  Transmission Date: 20141212
  Serious: Yes (Hospitalization)
  Sender: FDA-Public Use
  Company Number: PHHY2014SE045798

PATIENT
  Age: 71 Year
  Sex: Male

DRUGS (1)
  1. ENALAPRIL SANDOZ [Suspect]

REACTIONS (4)
  - Blood test abnormal [Recovered/Resolved with Sequelae]
  - Chromaturia [Recovered/Resolved with Sequelae]
  - Dizziness [Recovered/Resolved with Sequelae]
  - Nausea [Recovered/Resolved with Sequelae]
